FAERS Safety Report 7648820-4 (Version None)
Quarter: 2011Q3

REPORT INFORMATION
  Report Type: 
  Country: None (occurrence: None)
  Receive Date: 20110801
  Receipt Date: 20110726
  Transmission Date: 20111222
  Serious: Yes (Other)
  Sender: FDA-Public Use
  Company Number: CA-PFIZER INC-2011170965

PATIENT
  Age: 57 Year
  Sex: Female

DRUGS (5)
  1. METOPROLOL [Concomitant]
     Indication: BLOOD PRESSURE
     Dosage: 2.5 MG, 1X/DAY
  2. VALSARTAN [Concomitant]
     Indication: BLOOD PRESSURE
     Dosage: 80 MG, 1X/DAY
  3. VENTOLIN HFA [Concomitant]
     Indication: ASTHMA
     Dosage: 2 PUFFS EVERY 6 HOURS IF NEEDED
     Route: 055
  4. XALATAN [Suspect]
     Indication: GLAUCOMA
     Dosage: 1 GTT IN BOTH EYES, 1X/DAY
     Route: 047
     Dates: start: 20000101
  5. FLOVENT [Concomitant]
     Indication: ASTHMA
     Dosage: UNK

REACTIONS (2)
  - EYE IRRITATION [None]
  - LASER THERAPY [None]
